FAERS Safety Report 13876008 (Version 1)
Quarter: 2017Q3

REPORT INFORMATION
  Report Type: Report from Study
  Country: None (occurrence: BR)
  Receive Date: 20170817
  Receipt Date: 20170817
  Transmission Date: 20171127
  Serious: Yes (Hospitalization)
  Sender: FDA-Public Use
  Company Number: BR-ABBVIE-17K-020-2070094-00

PATIENT
  Age: 61 Year
  Sex: Female
  Weight: 87 kg

DRUGS (1)
  1. HUMIRA [Suspect]
     Active Substance: ADALIMUMAB
     Indication: RHEUMATOID ARTHRITIS
     Route: 058
     Dates: start: 20161109, end: 201706

REACTIONS (21)
  - Hypophagia [Not Recovered/Not Resolved]
  - Swelling face [Not Recovered/Not Resolved]
  - Skin papilloma [Not Recovered/Not Resolved]
  - Fall [Recovered/Resolved]
  - Rash macular [Not Recovered/Not Resolved]
  - Immunodeficiency [Not Recovered/Not Resolved]
  - Breath odour [Not Recovered/Not Resolved]
  - Lower limb fracture [Recovered/Resolved]
  - Hiatus hernia [Not Recovered/Not Resolved]
  - Skin discolouration [Not Recovered/Not Resolved]
  - Influenza [Not Recovered/Not Resolved]
  - Dry skin [Not Recovered/Not Resolved]
  - Hypertension [Recovered/Resolved]
  - Inflammation [Recovered/Resolved]
  - Dry mouth [Not Recovered/Not Resolved]
  - Catarrh [Not Recovered/Not Resolved]
  - Aphonia [Not Recovered/Not Resolved]
  - Weight increased [Not Recovered/Not Resolved]
  - Skin discolouration [Recovered/Resolved]
  - Gastritis [Not Recovered/Not Resolved]
  - Skin hypertrophy [Not Recovered/Not Resolved]

NARRATIVE: CASE EVENT DATE: 2017
